FAERS Safety Report 5109940-1 (Version None)
Quarter: 2006Q3

REPORT INFORMATION
  Report Type: 
  Country: None (occurrence: None)
  Receive Date: 20060731
  Receipt Date: 20060404
  Transmission Date: 20061208
  Serious: No
  Sender: FDA-Public Use
  Company Number: 2006PV011483

PATIENT
  Age: 62 Year
  Sex: Female
  Weight: 53.978 kg

DRUGS (3)
  1. BYETTA [Suspect]
     Indication: DIABETES MELLITUS NON-INSULIN-DEPENDENT
     Dosage: 5MCG;QPM;SC
     Route: 058
     Dates: start: 20060331
  2. GLUCOPHAGE [Concomitant]
  3. ACTOS [Concomitant]

REACTIONS (4)
  - BLOOD GLUCOSE DECREASED [None]
  - BLOOD GLUCOSE INCREASED [None]
  - FEELING JITTERY [None]
  - NAUSEA [None]
